FAERS Safety Report 5469641-7 (Version None)
Quarter: 2007Q3

REPORT INFORMATION
  Report Type: 
  Country: None (occurrence: None)
  Receive Date: 20070820
  Receipt Date: 20070430
  Transmission Date: 20080115
  Serious: No
  Sender: FDA-Public Use
  Company Number: WAES 0705USA00153

PATIENT
  Age: 68 Year
  Sex: Male

DRUGS (6)
  1. JANUVIA [Suspect]
     Indication: DIABETES MELLITUS
     Dosage: 50 MG/DAILY/PO; 50 MG/DAILY/PO
     Route: 048
     Dates: start: 20070101, end: 20070331
  2. JANUVIA [Suspect]
     Indication: DIABETES MELLITUS
     Dosage: 50 MG/DAILY/PO; 50 MG/DAILY/PO
     Route: 048
     Dates: start: 20070416
  3. COZAAR [Concomitant]
  4. HUMALOG [Concomitant]
  5. LANTUS [Concomitant]
  6. TRICOR [Concomitant]

REACTIONS (2)
  - PRURITUS [None]
  - URTICARIA [None]
